FAERS Safety Report 23343707 (Version 1)
Quarter: 2023Q4

REPORT INFORMATION
  Report Type: Spontaneous
  Country: US (occurrence: US)
  Receive Date: 20231227
  Receipt Date: 20231227
  Transmission Date: 20240110
  Serious: No
  Sender: FDA-Public Use
  Company Number: US-BAYER-2023A181776

PATIENT
  Age: 72 Year
  Sex: Female

DRUGS (1)
  1. MIRALAX [Suspect]
     Active Substance: POLYETHYLENE GLYCOL 3350
     Indication: Gastrointestinal disorder
     Dosage: QD,;17 GRAMS DAILY (ONE DOSE) DOSE
     Route: 048
     Dates: start: 20231214, end: 20231218

REACTIONS (3)
  - Feeling abnormal [Unknown]
  - Nervousness [Unknown]
  - General physical health deterioration [Unknown]
